FAERS Safety Report 5045738-0 (Version None)
Quarter: 2006Q2

REPORT INFORMATION
  Report Type: 
  Country: None (occurrence: None)
  Receive Date: 20060601
  Receipt Date: 20060308
  Transmission Date: 20061013
  Serious: No
  Sender: FDA-Public Use
  Company Number: 2006-BP-00231BP

PATIENT
  Age: 84 Year
  Sex: Male

DRUGS (14)
  1. SPIRIVA [Suspect]
     Indication: CHRONIC OBSTRUCTIVE PULMONARY DISEASE
     Dosage: 18 MCG (18 MCG,1 CAPSULE DAILY),IH
     Dates: start: 20050101
  2. SPIRIVA [Suspect]
     Indication: EMPHYSEMA
     Dosage: 18 MCG (18 MCG,1 CAPSULE DAILY),IH
     Dates: start: 20050101
  3. SPIRIVA [Suspect]
  4. PROSCAR [Concomitant]
  5. DOXAZOSIN (DOXAZOSIN) [Concomitant]
  6. CARDURA [Concomitant]
  7. ASCORBIC ACID [Concomitant]
  8. MULTI-VITAMIN [Concomitant]
  9. BRONKOLAIN [Concomitant]
  10. CO-Q 10 [Concomitant]
  11. SAW PALMETTO (SERENOA REPENS) [Concomitant]
  12. ACETYLCYSTEINE [Concomitant]
  13. PROBIOTIC [Concomitant]
  14. ACIDOPHILUS (LACTOBACILLUS ACIDOPHILUS) [Concomitant]

REACTIONS (3)
  - DRY MOUTH [None]
  - DYSPHONIA [None]
  - SWELLING FACE [None]
